FAERS Safety Report 5035535-4 (Version None)
Quarter: 2006Q2

REPORT INFORMATION
  Report Type: 
  Country: None (occurrence: None)
  Receive Date: 20060526
  Receipt Date: 20060309
  Transmission Date: 20061013
  Serious: No
  Sender: FDA-Public Use
  Company Number: 222942

PATIENT
  Age: 19 Year
  Sex: Female

DRUGS (1)
  1. RAPTIVA [Suspect]
     Dosage: SEE IMAGE
     Dates: start: 20050801

REACTIONS (4)
  - LYMPHADENOPATHY [None]
  - MIGRAINE [None]
  - PYREXIA [None]
  - SINUSITIS [None]
